FAERS Safety Report 7951075-4 (Version None)
Quarter: 2011Q4

REPORT INFORMATION
  Report Type: 
  Country: None (occurrence: None)
  Receive Date: 20111123
  Receipt Date: 20111114
  Transmission Date: 20120403
  Serious: Yes (Other)
  Sender: FDA-Public Use
  Company Number: 2011P1009500

PATIENT
  Age: 89 Year
  Sex: Male
  Weight: 70.3075 kg

DRUGS (10)
  1. CALCIUM 600 WITH VITAMIN D3 [Concomitant]
  2. ISOSORBIDE DINITRATE [Concomitant]
  3. VICODIN [Concomitant]
  4. DILTIAZEM HCL [Concomitant]
  5. FISH OIL [Concomitant]
  6. MAGNESIUM SULFATE [Concomitant]
  7. LOVAZA [Concomitant]
  8. WARFARIN SODIUM [Suspect]
     Indication: ATRIAL FIBRILLATION
     Dosage: 5MG;QD;PO, 10MG;QD;PO, 5MG;QD;PO
     Route: 048
     Dates: start: 20110725
  9. WARFARIN SODIUM [Suspect]
     Indication: ATRIAL FIBRILLATION
     Dosage: 5MG;QD;PO, 10MG;QD;PO, 5MG;QD;PO
     Route: 048
  10. NITROGLYCERIN SL [Concomitant]

REACTIONS (20)
  - AGITATION [None]
  - NERVOUSNESS [None]
  - CARDIOMEGALY [None]
  - ACCIDENTAL OVERDOSE [None]
  - DIZZINESS [None]
  - ECCHYMOSIS [None]
  - ANAEMIA [None]
  - HAEMOPTYSIS [None]
  - ANXIETY [None]
  - HEART RATE IRREGULAR [None]
  - INSOMNIA [None]
  - ARTHRITIS [None]
  - INTERNATIONAL NORMALISED RATIO INCREASED [None]
  - EPISTAXIS [None]
  - PAIN IN EXTREMITY [None]
  - CONTUSION [None]
  - MOUTH HAEMORRHAGE [None]
  - CONSTIPATION [None]
  - HYPERTENSION [None]
  - OEDEMA PERIPHERAL [None]
